FAERS Safety Report 8181662-2 (Version None)
Quarter: 2012Q1

REPORT INFORMATION
  Report Type: 
  Country: None (occurrence: None)
  Receive Date: 20120302
  Receipt Date: 20120229
  Transmission Date: 20120608
  Serious: Yes (Hospitalization)
  Sender: FDA-Public Use
  Company Number: JP-BAYER-2012-020656

PATIENT
  Age: 81 Year
  Sex: Male

DRUGS (2)
  1. ASPIRIN [Suspect]
     Dosage: UNK
     Route: 048
     Dates: start: 20050101
  2. WARFARIN SODIUM [Suspect]
     Dosage: UNK
     Route: 048
     Dates: start: 20070101

REACTIONS (1)
  - FAT EMBOLISM [None]
